FAERS Safety Report 9972059 (Version 1)
Quarter: 2014Q1

REPORT INFORMATION
  Report Type: Spontaneous
  Country: FR (occurrence: None)
  Receive Date: 20140304
  Receipt Date: 20140304
  Transmission Date: 20141002
  Serious: Yes (Other)
  Sender: FDA-Public Use
  Company Number: 2014053433

PATIENT
  Age: 60 Year
  Sex: Male

DRUGS (1)
  1. FRAGMINE (DALTEPARIN SODIUM) SOLUTION FOR INJECTION [Suspect]
     Indication: PROPHYLAXIS
     Route: 058
     Dates: start: 20140111

REACTIONS (1)
  - Thrombocytosis [None]
